FAERS Safety Report 5069044-3 (Version None)
Quarter: 2006Q3

REPORT INFORMATION
  Report Type: 
  Country: None (occurrence: None)
  Receive Date: 20060731
  Receipt Date: 20060718
  Transmission Date: 20061208
  Serious: Yes (Hospitalization)
  Sender: FDA-Public Use
  Company Number: 227574

PATIENT
  Age: 60 Year
  Sex: Male
  Weight: 99.8 kg

DRUGS (3)
  1. RITUXIMAB OR PLACEBO(RITUXIMAB) CONC FOR SOLUTION FOR INFUSION [Suspect]
     Indication: MULTIPLE SCLEROSIS
     Dosage: DAYS 1 + 15, INTRAVENOUS
     Route: 042
     Dates: start: 20050914
  2. DITROPAN [Concomitant]
  3. BACLOFEN [Concomitant]

REACTIONS (3)
  - NEOPLASM MALIGNANT [None]
  - PLEURAL EFFUSION [None]
  - PNEUMONIA [None]
